FAERS Safety Report 19440969 (Version 1)
Quarter: 2021Q2

REPORT INFORMATION
  Report Type: Spontaneous
  Country: US (occurrence: US)
  Receive Date: 20210621
  Receipt Date: 20210621
  Transmission Date: 20210717
  Serious: Yes (Life-Threatening, Hospitalization, Other)
  Sender: FDA-Public Use
  Company Number: US-EPICPHARMA-US-2021EPCLIT00620

PATIENT
  Age: 23 Year
  Sex: Male

DRUGS (9)
  1. CALCIUM [Interacting]
     Active Substance: CALCIUM
     Route: 065
  2. SODIUM BICARBONATE. [Interacting]
     Active Substance: SODIUM BICARBONATE
     Route: 065
  3. CITALOPRAM [Suspect]
     Active Substance: CITALOPRAM HYDROBROMIDE
     Indication: PRODUCT USED FOR UNKNOWN INDICATION
     Route: 065
  4. HYDROXOCOBALAMIN [Interacting]
     Active Substance: HYDROXOCOBALAMIN
     Route: 065
  5. EPINEPHRINE. [Interacting]
     Active Substance: EPINEPHRINE
     Route: 065
  6. FAT EMULSION NOS [Interacting]
     Active Substance: EGG PHOSPHOLIPIDS\SAFFLOWER OIL\SOYBEAN OIL
     Route: 041
  7. FAT EMULSION NOS [Interacting]
     Active Substance: EGG PHOSPHOLIPIDS\SAFFLOWER OIL\SOYBEAN OIL
     Route: 040
  8. BUPROPION HYDROCHLORIDE. [Suspect]
     Active Substance: BUPROPION HYDROCHLORIDE
     Indication: PRODUCT USED FOR UNKNOWN INDICATION
     Route: 065
  9. NOREPINEPHRINE. [Interacting]
     Active Substance: NOREPINEPHRINE
     Route: 065

REACTIONS (7)
  - Acidosis [Recovering/Resolving]
  - Shock [Recovering/Resolving]
  - Seizure [Recovered/Resolved]
  - Tachyarrhythmia [Recovered/Resolved]
  - Overdose [Recovered/Resolved]
  - Toxicity to various agents [Recovered/Resolved]
  - Cardiac arrest [Recovering/Resolving]
